FAERS Safety Report 6371893-6 (Version None)
Quarter: 2009Q3

REPORT INFORMATION
  Report Type: 
  Country: None (occurrence: None)
  Receive Date: 20090918
  Receipt Date: 20090918
  Transmission Date: 20100115
  Serious: Yes (Other)
  Sender: FDA-Public Use
  Company Number: None

PATIENT
  Sex: Male
  Weight: 69.4003 kg

DRUGS (2)
  1. CIPROFLAXACIN [Suspect]
     Indication: BLADDER DISORDER
     Dosage: 500 MG 2/DAY PO
     Route: 048
     Dates: start: 20090913, end: 20090922
  2. CIPROFLAXACIN [Suspect]
     Indication: PROSTATE INFECTION
     Dosage: 500 MG 2/DAY PO
     Route: 048
     Dates: start: 20090913, end: 20090922

REACTIONS (3)
  - AMNESIA [None]
  - FEELING ABNORMAL [None]
  - RASH [None]
